FAERS Safety Report 15314632 (Version 2)
Quarter: 2019Q2

REPORT INFORMATION
  Report Type: Report from Study
  Country: CO (occurrence: CO)
  Receive Date: 20180824
  Receipt Date: 20190626
  Transmission Date: 20190711
  Serious: Yes (Death, Other)
  Sender: FDA-Public Use
  Company Number: CO-BAYER-2018-155585

PATIENT
  Age: 54 Year
  Sex: Female

DRUGS (1)
  1. ADEMPAS [Suspect]
     Active Substance: RIOCIGUAT
     Indication: PULMONARY HYPERTENSION
     Dosage: 1.0 MG, Q8HR
     Dates: start: 20180426, end: 20180529

REACTIONS (2)
  - Cardiac arrest [Fatal]
  - Endarterectomy [None]

NARRATIVE: CASE EVENT DATE: 20180727
